FAERS Safety Report 14325247 (Version 5)
Quarter: 2018Q1

REPORT INFORMATION
  Report Type: Spontaneous
  Country: IT (occurrence: IT)
  Receive Date: 20171226
  Receipt Date: 20180221
  Transmission Date: 20180509
  Serious: Yes (Other)
  Sender: FDA-Public Use
  Company Number: PHHY2017IT192867

PATIENT
  Sex: Female

DRUGS (3)
  1. DICLOFENAC [Suspect]
     Active Substance: DICLOFENAC
     Indication: NEURITIS
     Dosage: UNK
     Route: 065
  2. PARACETAMOL [Suspect]
     Active Substance: ACETAMINOPHEN
     Indication: NEURITIS
     Dosage: UNK
     Route: 065
  3. NIMESULIDE [Suspect]
     Active Substance: NIMESULIDE
     Indication: NEURITIS
     Dosage: UNK
     Route: 065

REACTIONS (2)
  - Maternal exposure during pregnancy [Unknown]
  - Overdose [Unknown]
